FAERS Safety Report 9105357 (Version 1)
Quarter: 2013Q1

REPORT INFORMATION
  Report Type: Spontaneous
  Country: FR (occurrence: FR)
  Receive Date: 20130220
  Receipt Date: 20130220
  Transmission Date: 20140127
  Serious: Yes (Hospitalization)
  Sender: FDA-Public Use
  Company Number: FR-GLAXOSMITHKLINE-B0867925A

PATIENT
  Age: 61 Year
  Sex: Female

DRUGS (1)
  1. ZELITREX [Suspect]
     Indication: ORAL HERPES
     Route: 048
     Dates: start: 20130110, end: 20130131

REACTIONS (4)
  - Thrombocytopenia [Recovering/Resolving]
  - Haematoma [Unknown]
  - Epistaxis [Unknown]
  - Purpura [Unknown]
